FAERS Safety Report 5157073-0 (Version None)
Quarter: 2006Q4

REPORT INFORMATION
  Report Type: 
  Country: None (occurrence: None)
  Receive Date: 20061127
  Receipt Date: 20061117
  Transmission Date: 20070319
  Serious: Yes (Death)
  Sender: FDA-Public Use
  Company Number: PHBS2006TW18065

PATIENT
  Age: 51 Year
  Sex: Female

DRUGS (1)
  1. DEFEROXAMINE MESYLATE [Suspect]
     Indication: IRON OVERLOAD
     Route: 065

REACTIONS (16)
  - BONE DEBRIDEMENT [None]
  - ERYTHEMA [None]
  - EXOPHTHALMOS [None]
  - EYE SWELLING [None]
  - MASS [None]
  - MUCORMYCOSIS [None]
  - NASAL MUCOSAL DISORDER [None]
  - NODULE [None]
  - ORBITAL OEDEMA [None]
  - OSTEOLYSIS [None]
  - PURULENT DISCHARGE [None]
  - PYREXIA [None]
  - RESPIRATORY FAILURE [None]
  - SEPTIC SHOCK [None]
  - SKIN LESION [None]
  - TENDERNESS [None]
